FAERS Safety Report 5373782-2 (Version None)
Quarter: 2007Q2

REPORT INFORMATION
  Report Type: 
  Country: None (occurrence: None)
  Receive Date: 20070628
  Receipt Date: 20070622
  Transmission Date: 20071010
  Serious: Yes (Hospitalization)
  Sender: FDA-Public Use
  Company Number: FR-ELI_LILLY_AND_COMPANY-FR200609002369

PATIENT
  Age: 5 Year
  Sex: Female
  Weight: 10.3 kg

DRUGS (1)
  1. HUMATROPE [Suspect]
     Indication: FOETAL GROWTH RETARDATION
     Dosage: UNK, UNK
     Route: 058
     Dates: start: 20050101, end: 20060101

REACTIONS (2)
  - HISTIOCYTOSIS HAEMATOPHAGIC [None]
  - INFECTIOUS MONONUCLEOSIS [None]
